FAERS Safety Report 18627720 (Version 1)
Quarter: 2020Q4

REPORT INFORMATION
  Report Type: Spontaneous
  Country: US (occurrence: US)
  Receive Date: 20201217
  Receipt Date: 20201217
  Transmission Date: 20210114
  Serious: No
  Sender: FDA-Public Use
  Company Number: US-SEPTODONT-201905603

PATIENT
  Sex: Male

DRUGS (1)
  1. GRAHAM MEPIVACAINE 3% [Suspect]
     Active Substance: MEPIVACAINE HYDROCHLORIDE
     Indication: DENTAL LOCAL ANAESTHESIA
     Route: 004
     Dates: start: 201909, end: 201910

REACTIONS (3)
  - Dental discomfort [Recovered/Resolved]
  - Anaesthetic complication [Recovered/Resolved]
  - Drug ineffective [Recovered/Resolved]

NARRATIVE: CASE EVENT DATE: 201909
